APPROVED DRUG PRODUCT: GABAPENTIN
Active Ingredient: GABAPENTIN
Strength: 400MG
Dosage Form/Route: CAPSULE;ORAL
Application: A211314 | Product #003 | TE Code: AB
Applicant: STRIDES PHARMA GLOBAL PTE LTD
Approved: Oct 16, 2018 | RLD: No | RS: No | Type: RX